FAERS Safety Report 7472442-1 (Version None)
Quarter: 2011Q1

REPORT INFORMATION
  Report Type: 
  Country: None (occurrence: None)
  Receive Date: 20110302
  Receipt Date: 20100823
  Transmission Date: 20110831
  Serious: Yes (Other)
  Sender: FDA-Public Use
  Company Number: 163-21880-10061019

PATIENT
  Age: 70 Year
  Sex: Female

DRUGS (8)
  1. COUMADIN [Concomitant]
  2. LEVOTHROID [Concomitant]
  3. REVLIMID [Suspect]
     Indication: MULTIPLE MYELOMA
     Dosage: 25 MG, DAILY X 21 DAYS EVERY 28 DAYS, PO; 10 MG, 1 IN 1 D, PO; 15-20MG, DAILY, PO
     Route: 048
     Dates: start: 20060201, end: 20060501
  4. REVLIMID [Suspect]
     Indication: MULTIPLE MYELOMA
     Dosage: 25 MG, DAILY X 21 DAYS EVERY 28 DAYS, PO; 10 MG, 1 IN 1 D, PO; 15-20MG, DAILY, PO
     Route: 048
     Dates: start: 20080101
  5. REVLIMID [Suspect]
     Indication: MULTIPLE MYELOMA
     Dosage: 25 MG, DAILY X 21 DAYS EVERY 28 DAYS, PO; 10 MG, 1 IN 1 D, PO; 15-20MG, DAILY, PO
     Route: 048
     Dates: start: 20060501, end: 20060801
  6. DECADRON [Concomitant]
  7. CALCIUM + D (OS-CAL) [Concomitant]
  8. VITAMIN D [Concomitant]

REACTIONS (3)
  - WHITE BLOOD CELL COUNT DECREASED [None]
  - NEUTROPHIL COUNT DECREASED [None]
  - ROTATOR CUFF SYNDROME [None]
